FAERS Safety Report 4722525-1 (Version None)
Quarter: 2005Q3

REPORT INFORMATION
  Report Type: 
  Country: None (occurrence: None)
  Receive Date: 20050722
  Receipt Date: 20050718
  Transmission Date: 20060218
  Serious: Yes (Life-Threatening, Hospitalization, Other)
  Sender: FDA-Public Use
  Company Number: DE-JNJFOC-20050700384

PATIENT
  Sex: Female
  Weight: 50 kg

DRUGS (4)
  1. TOPAMAX [Suspect]
     Route: 048
  2. TOPAMAX [Suspect]
     Route: 048
  3. TOPAMAX [Suspect]
     Route: 048
  4. TOPAMAX [Suspect]
     Indication: EPILEPSY
     Route: 048

REACTIONS (2)
  - INFECTION [None]
  - PANCYTOPENIA [None]
